FAERS Safety Report 16555761 (Version 2)
Quarter: 2019Q4

REPORT INFORMATION
  Report Type: Spontaneous
  Country: US (occurrence: US)
  Receive Date: 20190710
  Receipt Date: 20191227
  Transmission Date: 20200122
  Serious: Yes (Other)
  Sender: FDA-Public Use
  Company Number: US-JNJFOC-20190703355

PATIENT
  Age: 35 Year
  Sex: Male

DRUGS (1)
  1. TREMFYA [Suspect]
     Active Substance: GUSELKUMAB
     Indication: PSORIASIS
     Route: 058
     Dates: start: 20190611

REACTIONS (10)
  - Vision blurred [Recovering/Resolving]
  - Dysphonia [Recovering/Resolving]
  - Amnesia [Recovering/Resolving]
  - Headache [Recovering/Resolving]
  - Feeling abnormal [Recovering/Resolving]
  - Syncope [Recovering/Resolving]
  - Injection site erythema [Recovering/Resolving]
  - Somnolence [Recovering/Resolving]
  - Tunnel vision [Recovering/Resolving]
  - Dissociation [Recovering/Resolving]

NARRATIVE: CASE EVENT DATE: 20190617
